FAERS Safety Report 19442614 (Version 3)
Quarter: 2023Q1

REPORT INFORMATION
  Report Type: Report from Study
  Country: US (occurrence: US)
  Receive Date: 20210621
  Receipt Date: 20230117
  Transmission Date: 20230417
  Serious: Yes (Other)
  Sender: FDA-Public Use
  Company Number: US-PFIZER INC-2021253641

PATIENT
  Sex: Female

DRUGS (1)
  1. ATORVASTATIN [Suspect]
     Active Substance: ATORVASTATIN
     Indication: Product used for unknown indication
     Dosage: UNK
     Route: 065

REACTIONS (12)
  - Near death experience [Unknown]
  - Throat irritation [Unknown]
  - Throat tightness [Unknown]
  - Eating disorder [Unknown]
  - Somnolence [Unknown]
  - Pruritus [Unknown]
  - Blood cholesterol increased [Unknown]
  - Asthenia [Unknown]
  - Drug intolerance [Unknown]
  - Drug hypersensitivity [Unknown]
  - Dizziness [Unknown]
  - Rash [Unknown]
